FAERS Safety Report 19740458 (Version 1)
Quarter: 2021Q3

REPORT INFORMATION
  Report Type: Report from Study
  Country: IT (occurrence: IT)
  Receive Date: 20210824
  Receipt Date: 20210824
  Transmission Date: 20211014
  Serious: Yes (Hospitalization)
  Sender: FDA-Public Use
  Company Number: IT-ACCORD-235990

PATIENT
  Age: 78 Year
  Sex: Female

DRUGS (13)
  1. SAMYR [Suspect]
     Active Substance: ADEMETIONINE
  2. STILIDEN [Concomitant]
     Active Substance: PAROXETINE HYDROCHLORIDE
     Dosage: 10 MG / ML ORAL DROPS, SOLUTION
  3. LIMICAN [Concomitant]
     Active Substance: ALIZAPRIDE HYDROCHLORIDE
     Dosage: 50 MG TABLETS
  4. LEVOPRAID [SULPIRIDE] [Suspect]
     Active Substance: SULPIRIDE
  5. TACHIPIRINA [Concomitant]
     Active Substance: ACETAMINOPHEN
     Dosage: 1000 MG EFFERVESCENT TABLETS
  6. TERAZOSIN [Suspect]
     Active Substance: TERAZOSIN HYDROCHLORIDE
  7. MEDROL [Concomitant]
     Active Substance: METHYLPREDNISOLONE
     Dosage: 16 MG TABLETS
  8. LYRICA [Suspect]
     Active Substance: PREGABALIN
  9. RIVOTRIL [Concomitant]
     Active Substance: CLONAZEPAM
  10. OLANZAPINE. [Concomitant]
     Active Substance: OLANZAPINE
  11. AMLODIPINE [Suspect]
     Active Substance: AMLODIPINE BESYLATE
  12. VALSARTAN. [Suspect]
     Active Substance: VALSARTAN
  13. DEFLAN [Concomitant]
     Active Substance: DEFLAZACORT
     Dosage: 6 MG TABLETS

REACTIONS (2)
  - Toxicity to various agents [Unknown]
  - Drug abuse [Unknown]

NARRATIVE: CASE EVENT DATE: 20210625
